FAERS Safety Report 8307298-8 (Version None)
Quarter: 2012Q2

REPORT INFORMATION
  Report Type: 
  Country: None (occurrence: None)
  Receive Date: 20120420
  Receipt Date: 20120404
  Transmission Date: 20120825
  Serious: Yes (Hospitalization)
  Sender: FDA-Public Use
  Company Number: 2012AT000164

PATIENT
  Age: 85 Year
  Sex: Male

DRUGS (8)
  1. INVESTIGATIONAL DRUG (INVESTIGATIONAL DRUG) [Suspect]
     Indication: CORONARY ARTERY DISEASE
     Dosage: PO
     Route: 048
     Dates: start: 20090616
  2. RAMIPRIL [Suspect]
     Indication: CORONARY ARTERY DISEASE
     Dosage: 20 MG;QD;PO
     Route: 048
     Dates: start: 20010910, end: 20111125
  3. FUROSEMIDE [Suspect]
     Indication: CARDIAC FAILURE CONGESTIVE
     Dosage: 80 MG;QD;PO
     Route: 048
     Dates: start: 20111121, end: 20111125
  4. ASPIRIN [Concomitant]
  5. ISOSORBIDE DINITRATE [Suspect]
     Indication: ANGINA PECTORIS
     Dosage: 40 MG;QD;PO
     Route: 048
     Dates: start: 20110314, end: 20111125
  6. METOPROLOL TARTRATE [Suspect]
     Indication: CORONARY ARTERY DISEASE
     Dosage: 100 MG;QD;PO
     Route: 048
     Dates: start: 20111122, end: 20111125
  7. FERROUS GLUCONATE [Concomitant]
  8. SMVASTATIN [Concomitant]

REACTIONS (5)
  - CARDIAC FAILURE CONGESTIVE [None]
  - ASTHENIA [None]
  - DIZZINESS [None]
  - HYPOTENSION [None]
  - BLOOD POTASSIUM DECREASED [None]
